FAERS Safety Report 4758585-1 (Version None)
Quarter: 2005Q3

REPORT INFORMATION
  Report Type: 
  Country: None (occurrence: None)
  Receive Date: 20050826
  Receipt Date: 20050815
  Transmission Date: 20060218
  Serious: Yes (Hospitalization)
  Sender: FDA-Public Use
  Company Number: 107328ISR

PATIENT
  Age: 46 Year
  Sex: Male

DRUGS (3)
  1. GLATIRAMER ACETATE [Suspect]
     Indication: MULTIPLE SCLEROSIS
     Dosage: 20 MILLIGRAM SUBCUTANEOUS
     Route: 058
     Dates: start: 20050724, end: 20050730
  2. GABAPENTIN [Concomitant]
  3. TRIMIPRAMINE MALEATE [Concomitant]

REACTIONS (5)
  - HEADACHE [None]
  - LYMPHOPENIA [None]
  - NAUSEA [None]
  - PYREXIA [None]
  - VOMITING [None]
